FAERS Safety Report 19931608 (Version 2)
Quarter: 2021Q4

REPORT INFORMATION
  Report Type: Spontaneous
  Country: GR (occurrence: GR)
  Receive Date: 20211008
  Receipt Date: 20211018
  Transmission Date: 20220303
  Serious: Yes (Other)
  Sender: FDA-Public Use
  Company Number: GR-CELLTRION INC.-2021GR013618

PATIENT

DRUGS (1)
  1. INFLIXIMAB [Suspect]
     Active Substance: INFLIXIMAB
     Indication: Product used for unknown indication
     Dosage: UNK
     Route: 042

REACTIONS (5)
  - Palpitations [Recovered/Resolved]
  - Dyspnoea [Recovered/Resolved]
  - Hypotension [Recovered/Resolved]
  - Chills [Recovered/Resolved]
  - Abdominal pain [Recovered/Resolved]

NARRATIVE: CASE EVENT DATE: 20210101
